FAERS Safety Report 22167071 (Version 1)
Quarter: 2023Q1

REPORT INFORMATION
  Report Type: Spontaneous
  Country: US (occurrence: None)
  Receive Date: 20230330
  Receipt Date: 20230330
  Transmission Date: 20230418
  Serious: Yes (Other)
  Sender: FDA-Public Use
  Company Number: None

PATIENT
  Age: 39 Year
  Sex: Female
  Weight: 56.25 kg

DRUGS (1)
  1. SUMATRIPTAN [Suspect]
     Active Substance: SUMATRIPTAN
     Indication: Migraine
     Dosage: OTHER QUANTITY : 9 TABLET(S);?FREQUENCY : AS NEEDED;?
     Route: 048
     Dates: start: 20220707, end: 20230329

REACTIONS (2)
  - Product expiration date issue [None]
  - Product dispensing error [None]

NARRATIVE: CASE EVENT DATE: 20230329
